FAERS Safety Report 6655117-8 (Version None)
Quarter: 2010Q1

REPORT INFORMATION
  Report Type: 
  Country: None (occurrence: None)
  Receive Date: 20100317
  Receipt Date: 20100128
  Transmission Date: 20100710
  Serious: No
  Sender: FDA-Public Use
  Company Number: DSA_42511_2010

PATIENT
  Sex: Female
  Weight: 59.8748 kg

DRUGS (9)
  1. XENAZINE [Suspect]
     Indication: HUNTINGTON'S CHOREA
     Dosage: 12.5 MG BID ORAL, 12.5 MG QD ORAL, 12.5 MG TID ORAL
     Route: 048
     Dates: start: 20100101, end: 20100121
  2. XENAZINE [Suspect]
     Indication: HUNTINGTON'S CHOREA
     Dosage: 12.5 MG BID ORAL, 12.5 MG QD ORAL, 12.5 MG TID ORAL
     Route: 048
     Dates: start: 20100122, end: 20100128
  3. XENAZINE [Suspect]
     Indication: HUNTINGTON'S CHOREA
     Dosage: 12.5 MG BID ORAL, 12.5 MG QD ORAL, 12.5 MG TID ORAL
     Route: 048
     Dates: start: 20100129
  4. CYMBALTA [Concomitant]
  5. PRILOSEC [Concomitant]
  6. DEPAKOTE [Concomitant]
  7. ADDERALL 30 [Concomitant]
  8. TRAZODONE [Concomitant]
  9. LUMIGAN [Concomitant]

REACTIONS (1)
  - SOMNOLENCE [None]
